FAERS Safety Report 4697821-7 (Version None)
Quarter: 2005Q2

REPORT INFORMATION
  Report Type: 
  Country: None (occurrence: None)
  Receive Date: 20050621
  Receipt Date: 20050621
  Transmission Date: 20051028
  Serious: Yes (Hospitalization)
  Sender: FDA-Public Use
  Company Number: None

PATIENT
  Age: 56 Year
  Sex: Male
  Weight: 78 kg

DRUGS (1)
  1. GEMCITABINE    1 GM     LILLY [Suspect]
     Indication: BLADDER CANCER
     Dosage: 2030MG    DAY 1 AND 8    INTRAVENOU
     Route: 042
     Dates: start: 20050428, end: 20050529

REACTIONS (1)
  - PANCYTOPENIA [None]
